FAERS Safety Report 15166474 (Version 1)
Quarter: 2018Q3

REPORT INFORMATION
  Report Type: Spontaneous
  Country: US (occurrence: US)
  Receive Date: 20180719
  Receipt Date: 20180719
  Transmission Date: 20181010
  Serious: No
  Sender: FDA-Public Use
  Company Number: US-OTSUKA-2018_014162

PATIENT
  Sex: Male

DRUGS (2)
  1. REXULTI [Suspect]
     Active Substance: BREXPIPRAZOLE
     Dosage: 1 MG, UNK (DAYS 8 AND 9)
     Route: 065
  2. REXULTI [Suspect]
     Active Substance: BREXPIPRAZOLE
     Indication: DEPRESSION
     Dosage: 0.5 MG, QD (FOR 7 DAYS)
     Route: 065

REACTIONS (5)
  - Restlessness [Unknown]
  - Akathisia [Unknown]
  - Therapeutic response unexpected [Unknown]
  - Insomnia [Unknown]
  - Adverse event [Unknown]
